FAERS Safety Report 10910061 (Version 1)
Quarter: 2015Q1

REPORT INFORMATION
  Report Type: Spontaneous
  Country: US (occurrence: US)
  Receive Date: 20150312
  Receipt Date: 20150312
  Transmission Date: 20150721
  Serious: No
  Sender: FDA-Public Use
  Company Number: US-SA-2014SA090213

PATIENT
  Age: 37 Year
  Sex: Female

DRUGS (1)
  1. NASACORT ALLERGY 24HR [Suspect]
     Active Substance: TRIAMCINOLONE ACETONIDE
     Indication: PRODUCT USED FOR UNKNOWN INDICATION
     Dosage: START DATE:2 WEEKS AGO
     Route: 065

REACTIONS (4)
  - Nasal discomfort [Unknown]
  - Malaise [Unknown]
  - Ageusia [Unknown]
  - Dysgeusia [Unknown]
